FAERS Safety Report 5814405-5 (Version None)
Quarter: 2008Q3

REPORT INFORMATION
  Report Type: 
  Country: None (occurrence: None)
  Receive Date: 20080718
  Receipt Date: 20080709
  Transmission Date: 20090109
  Serious: Yes (Other)
  Sender: FDA-Public Use
  Company Number: NL-JNJFOC-20080606792

PATIENT
  Sex: Female
  Weight: 57.5 kg

DRUGS (6)
  1. TMC125 [Suspect]
     Route: 048
  2. TMC125 [Suspect]
     Indication: HIV INFECTION
     Dosage: PERMANENT STOP
     Route: 048
  3. PREZISTA [Suspect]
     Indication: HIV INFECTION
     Route: 048
  4. RALTEGRAVIR [Suspect]
     Indication: HIV INFECTION
  5. NORVIR [Suspect]
     Indication: HIV INFECTION
  6. MARAVIROC [Suspect]
     Indication: HIV INFECTION

REACTIONS (1)
  - HYPERSENSITIVITY [None]
